FAERS Safety Report 8521926-3 (Version None)
Quarter: 2012Q3

REPORT INFORMATION
  Report Type: 
  Country: None (occurrence: None)
  Receive Date: 20120719
  Receipt Date: 20120530
  Transmission Date: 20120928
  Serious: No
  Sender: FDA-Public Use
  Company Number: US-BRISTOL-MYERS SQUIBB COMPANY-16646895

PATIENT
  Age: 67 Year
  Sex: Male
  Weight: 76 kg

DRUGS (3)
  1. YERVOY [Suspect]
     Indication: PROSTATE CANCER
     Dosage: LAST DOSE ON 18MAY12,NO OF INF:2
     Dates: start: 20120427
  2. BENADRYL [Concomitant]
  3. PROVENGE [Suspect]

REACTIONS (1)
  - RASH GENERALISED [None]
